FAERS Safety Report 7524986-1 (Version None)
Quarter: 2011Q2

REPORT INFORMATION
  Report Type: 
  Country: None (occurrence: None)
  Receive Date: 20110606
  Receipt Date: 20110527
  Transmission Date: 20111010
  Serious: Yes (Other)
  Sender: FDA-Public Use
  Company Number: US-ASTELLAS-2011US002573

PATIENT
  Age: 72 Year
  Sex: Female
  Weight: 58 kg

DRUGS (3)
  1. IMC-A12 [Suspect]
     Indication: ADENOCARCINOMA PANCREAS
     Dosage: 6 MG/KG, OTHER
     Route: 042
     Dates: start: 20100618, end: 20110520
  2. ERLOTINIB HYDROCHLORIDE [Suspect]
     Indication: ADENOCARCINOMA PANCREAS
     Dosage: 100 MG, UID/QD
     Route: 048
     Dates: start: 20100618, end: 20110526
  3. GEMCITABINE [Suspect]
     Indication: ADENOCARCINOMA PANCREAS
     Dosage: 1000 MG/M2, OTHER
     Route: 042
     Dates: start: 20100618, end: 20110513

REACTIONS (1)
  - LUNG NEOPLASM [None]
